FAERS Safety Report 12633130 (Version 1)
Quarter: 2016Q3

REPORT INFORMATION
  Report Type: Spontaneous
  Country: US (occurrence: None)
  Receive Date: 20160808
  Receipt Date: 20160808
  Transmission Date: 20161109
  Serious: No
  Sender: FDA-Public Use
  Company Number: None

PATIENT
  Age: 29 Year
  Sex: Female

DRUGS (1)
  1. CYCLOSPORINE CAP MOD 50MG [Suspect]
     Active Substance: CYCLOSPORINE
     Indication: IDIOPATHIC URTICARIA

REACTIONS (2)
  - Alopecia [None]
  - Fatigue [None]

NARRATIVE: CASE EVENT DATE: 20160804
